FAERS Safety Report 5608541-6 (Version None)
Quarter: 2008Q1

REPORT INFORMATION
  Report Type: 
  Country: None (occurrence: None)
  Receive Date: 20080130
  Receipt Date: 20080120
  Transmission Date: 20080703
  Serious: Yes (Other)
  Sender: FDA-Public Use
  Company Number: US-PFIZER INC-2008006461

PATIENT
  Sex: Male

DRUGS (1)
  1. VIAGRA [Suspect]

REACTIONS (4)
  - GENITAL INJURY [None]
  - PENIS DISORDER [None]
  - PEYRONIE'S DISEASE [None]
  - SPONTANEOUS PENILE ERECTION [None]
